FAERS Safety Report 7063417-5 (Version None)
Quarter: 2010Q4

REPORT INFORMATION
  Report Type: 
  Country: None (occurrence: None)
  Receive Date: 20101026
  Receipt Date: 20091130
  Transmission Date: 20110411
  Serious: Yes (Other)
  Sender: FDA-Public Use
  Company Number: US-ABBOTT-09P-163-0611601-00

PATIENT
  Age: 33 Year
  Sex: Female

DRUGS (2)
  1. LUPRON DEPOT [Suspect]
     Indication: ENDOMETRIOSIS
     Dates: start: 20090901
  2. ULTRAM [Concomitant]
     Indication: HEADACHE

REACTIONS (3)
  - DEHYDRATION [None]
  - GRAND MAL CONVULSION [None]
  - INSOMNIA [None]
